FAERS Safety Report 6788045-8 (Version None)
Quarter: 2010Q2

REPORT INFORMATION
  Report Type: 
  Country: None (occurrence: None)
  Receive Date: 20100623
  Receipt Date: 20080216
  Transmission Date: 20101027
  Serious: Yes (Other)
  Sender: FDA-Public Use
  Company Number: US-PFIZER INC-2007096567

PATIENT
  Sex: Male
  Weight: 60 kg

DRUGS (4)
  1. XALATAN [Suspect]
     Indication: OPEN ANGLE GLAUCOMA
     Dosage: AT BEDTIME
     Route: 047
     Dates: start: 20040401
  2. COZAAR [Concomitant]
  3. PRAVACHOL [Concomitant]
  4. LASIX [Concomitant]

REACTIONS (12)
  - ARTHRALGIA [None]
  - CHEST PAIN [None]
  - DYSPNOEA [None]
  - FATIGUE [None]
  - HAEMATOCRIT DECREASED [None]
  - HAEMOGLOBIN DECREASED [None]
  - HEADACHE [None]
  - MEAN CELL HAEMOGLOBIN [None]
  - MEAN CELL VOLUME INCREASED [None]
  - RED BLOOD CELL COUNT DECREASED [None]
  - SERUM FERRITIN INCREASED [None]
  - WEIGHT DECREASED [None]
